FAERS Safety Report 7717283-2 (Version None)
Quarter: 2011Q3

REPORT INFORMATION
  Report Type: 
  Country: None (occurrence: None)
  Receive Date: 20110818
  Receipt Date: 20110714
  Transmission Date: 20111222
  Serious: No
  Sender: FDA-Public Use
  Company Number: 1000022206

PATIENT
  Age: 56 Year
  Sex: Female

DRUGS (7)
  1. ZOCOR [Concomitant]
  2. VIIBRYD [Suspect]
     Indication: DEPRESSION
     Dosage: 10 MG (10 MG, 1 IN 1 D), ORAL
     Route: 048
     Dates: start: 20110711
  3. VIIBRYD [Suspect]
     Indication: ANXIETY
     Dosage: 10 MG (10 MG, 1 IN 1 D), ORAL
     Route: 048
     Dates: start: 20110711
  4. VIIBRYD [Suspect]
     Indication: POST-TRAUMATIC STRESS DISORDER
     Dosage: 10 MG (10 MG, 1 IN 1 D), ORAL
     Route: 048
     Dates: start: 20110711
  5. ZOLPIMIST [Suspect]
     Indication: INSOMNIA
     Dates: start: 20110708
  6. COREG (CARVEDILOL) (CARVEDILOL) [Concomitant]
  7. PLAVIX [Concomitant]

REACTIONS (7)
  - NIGHTMARE [None]
  - DIZZINESS [None]
  - FEAR OF DISEASE [None]
  - PALPITATIONS [None]
  - UNEVALUABLE EVENT [None]
  - VOMITING [None]
  - HYPERHIDROSIS [None]
